FAERS Safety Report 18889800 (Version 2)
Quarter: 2021Q1

REPORT INFORMATION
  Report Type: Spontaneous
  Country: DE (occurrence: DE)
  Receive Date: 20210213
  Receipt Date: 20210327
  Transmission Date: 20210420
  Serious: Yes (Other)
  Sender: FDA-Public Use
  Company Number: NVSC2021DE026603

PATIENT
  Age: 53 Year
  Sex: Female
  Weight: 70 kg

DRUGS (11)
  1. DOCETAXEL. [Suspect]
     Active Substance: DOCETAXEL
     Indication: HER2 POSITIVE BREAST CANCER
     Dosage: 75 MG/M2, TIW (IN COMBINATION WITH PERJETA AND HERZUMA)
     Route: 042
     Dates: start: 20210113
  2. PERJETA [Suspect]
     Active Substance: PERTUZUMAB
     Indication: HER2 POSITIVE BREAST CANCER
     Dosage: 840 MG, TIW (IN COMBINATION WITH HERZUMA AND DOCETAXEL)
     Route: 042
     Dates: start: 20210113
  3. CYCLOPHOSPHAMIDE. [Suspect]
     Active Substance: CYCLOPHOSPHAMIDE
     Indication: HER2 POSITIVE BREAST CANCER
     Dosage: UNK (COMBINATION WITH EPIRUBICIN)
     Route: 065
  4. DOCETAXEL. [Suspect]
     Active Substance: DOCETAXEL
     Dosage: UNK (IN COMBINATION WITH PERJETA AND HERCEPTIN)
     Route: 065
  5. DOCETAXEL. [Suspect]
     Active Substance: DOCETAXEL
     Dosage: 75 MG/M2, TIW (IN COMBINATION WITH PERJETA AND HERZUMA)
     Route: 042
     Dates: start: 20210203
  6. PERJETA [Suspect]
     Active Substance: PERTUZUMAB
     Dosage: UNK (IN COMBINATION WITH HERCEPTIN AND DOCETAXEL)
     Route: 065
  7. DEXAMETHASONE. [Concomitant]
     Active Substance: DEXAMETHASONE
     Indication: PROPHYLAXIS OF NAUSEA AND VOMITING
     Dosage: 8 MG, TIW
     Route: 042
     Dates: start: 20210113
  8. EPIRUBICIN [Suspect]
     Active Substance: EPIRUBICIN
     Indication: HER2 POSITIVE BREAST CANCER
     Dosage: UNK (COMBINATION WITH CYCLOPHOSPHAMID)
     Route: 065
  9. HERCEPTIN [Suspect]
     Active Substance: TRASTUZUMAB
     Indication: HER2 POSITIVE BREAST CANCER
     Dosage: UNK (IN COMBINATION WITH PERJETA AND DOCETAXEL)
     Route: 065
  10. PERJETA [Suspect]
     Active Substance: PERTUZUMAB
     Dosage: 840 MG, TIW (IN COMBINATION WITH HERZUMA AND DOCETAXEL)
     Route: 042
     Dates: start: 20210203
  11. ALOXI [Concomitant]
     Active Substance: PALONOSETRON HYDROCHLORIDE
     Indication: PROPHYLAXIS OF NAUSEA AND VOMITING
     Dosage: 0.25 MG, TIW
     Route: 042
     Dates: start: 20210113

REACTIONS (2)
  - Retinal haemorrhage [Recovering/Resolving]
  - Retinal tear [Recovering/Resolving]

NARRATIVE: CASE EVENT DATE: 20210122
